FAERS Safety Report 23898295 (Version 1)
Quarter: 2024Q2

REPORT INFORMATION
  Report Type: Spontaneous
  Country: US (occurrence: US)
  Receive Date: 20240524
  Receipt Date: 20240524
  Transmission Date: 20240716
  Serious: No
  Sender: FDA-Public Use
  Company Number: US-BRISTOL-MYERS SQUIBB COMPANY-2024-080406

PATIENT
  Age: 81 Year
  Sex: Male

DRUGS (2)
  1. POMALYST [Suspect]
     Active Substance: POMALIDOMIDE
     Indication: Plasma cell myeloma
     Dosage: DOSE WAS ADJUSTED TO 14 DAYS ON, 14 DAYS OFF, FROM PREVIOUS OF 21 DAYS ON, 7 DAYS OFF
     Route: 048
  2. POMALYST [Suspect]
     Active Substance: POMALIDOMIDE
     Dosage: DOSE WAS ADJUSTED TO 14 DAYS ON, 14 DAYS OFF, FROM PREVIOUS OF 21 DAYS ON, 7 DAYS OFF
     Route: 048

REACTIONS (2)
  - Blood test abnormal [Unknown]
  - Off label use [Unknown]
